FAERS Safety Report 5400255-0 (Version None)
Quarter: 2007Q3

REPORT INFORMATION
  Report Type: 
  Country: None (occurrence: None)
  Receive Date: 20070727
  Receipt Date: 20070727
  Transmission Date: 20080115
  Serious: Yes (Life-Threatening, Hospitalization)
  Sender: FDA-Public Use
  Company Number: None

PATIENT
  Age: 76 Year
  Sex: Female

DRUGS (6)
  1. WARFARIN SODIUM [Suspect]
     Indication: MITRAL VALVE PROLAPSE
     Dosage: 5 MG DAILY PO
     Route: 048
  2. DIOVAN [Concomitant]
  3. POTASSIUM CHLORIDE [Concomitant]
  4. CITRACAL [Concomitant]
  5. ZOCOR [Concomitant]
  6. LASIX [Concomitant]

REACTIONS (4)
  - COAGULOPATHY [None]
  - FALL [None]
  - SUBARACHNOID HAEMORRHAGE [None]
  - SUBDURAL HAEMORRHAGE [None]
